FAERS Safety Report 7487470-X (Version None)
Quarter: 2011Q2

REPORT INFORMATION
  Report Type: 
  Country: None (occurrence: None)
  Receive Date: 20110510
  Receipt Date: 20110505
  Transmission Date: 20111010
  Serious: Yes (Other)
  Sender: FDA-Public Use
  Company Number: GER/UKI/11/0018182

PATIENT
  Age: 49 Year
  Sex: Female

DRUGS (2)
  1. SODIUM CHLORIDE 0.9% [Suspect]
     Indication: NUTRITIONAL SUPPORT
     Dosage: 1 IN 1 D, INTRAVENOUS
     Route: 042
  2. OMEPRAZOLE [Suspect]
     Indication: PRODUCT USED FOR UNKNOWN INDICATION
     Dosage: 1 IN 1 D, ORAL
     Route: 048

REACTIONS (8)
  - HYPERVENTILATION [None]
  - METABOLIC ACIDOSIS [None]
  - BLOOD MAGNESIUM DECREASED [None]
  - HYPERCHLORAEMIA [None]
  - BLOOD POTASSIUM DECREASED [None]
  - PSYCHOTIC DISORDER [None]
  - BLOOD CREATININE INCREASED [None]
  - ALKALOSIS HYPOCHLORAEMIC [None]
